FAERS Safety Report 6844728-2 (Version None)
Quarter: 2010Q3

REPORT INFORMATION
  Report Type: 
  Country: None (occurrence: None)
  Receive Date: 20100715
  Receipt Date: 20100713
  Transmission Date: 20110219
  Serious: Yes (Life-Threatening, Hospitalization, Other)
  Sender: FDA-Public Use
  Company Number: HU-BRISTOL-MYERS SQUIBB COMPANY-15175805

PATIENT
  Age: 63 Year
  Sex: Male
  Weight: 99 kg

DRUGS (8)
  1. CISPLATIN [Suspect]
     Indication: NON-SMALL CELL LUNG CANCER
     Dosage: FOURTH AND RECENT INFUSION ON 02JUN10 STOPPED ON 23JUN10
     Route: 042
     Dates: start: 20100330, end: 20100511
  2. GEMCITABINE HCL [Suspect]
     Indication: NON-SMALL CELL LUNG CANCER
     Dosage: EIGHTH AND RECENT INFUSION ON 10JUN10 STOPPED ON 23JUN10
     Route: 042
     Dates: start: 20100330, end: 20100518
  3. POTASSIUM CHLORIDE [Concomitant]
     Indication: MINERAL SUPPLEMENTATION
     Route: 065
     Dates: start: 20100330
  4. DOXORUBICIN HCL [Concomitant]
     Indication: DIABETES MELLITUS
     Route: 065
     Dates: start: 19900101
  5. TRENTAL [Concomitant]
     Indication: ARTERIOSCLEROSIS
     Route: 065
     Dates: start: 19900101
  6. RANITIDINE [Concomitant]
     Indication: GASTRITIS
     Route: 065
     Dates: start: 19900101
  7. AMILORIDE HYDROCHLORIDE [Concomitant]
     Indication: MYOCARDIAL ISCHAEMIA
     Route: 065
     Dates: start: 19900101
  8. BETALOC ZOK [Concomitant]
     Indication: MYOCARDIAL ISCHAEMIA
     Route: 065
     Dates: start: 20000101

REACTIONS (5)
  - ASTHENIA [None]
  - HYPERURICAEMIA [None]
  - HYPOPHOSPHATAEMIA [None]
  - LEUKOPENIA [None]
  - THROMBOCYTOPENIA [None]
